FAERS Safety Report 9396065 (Version 3)
Quarter: 2013Q4

REPORT INFORMATION
  Report Type: Spontaneous
  Country: GB (occurrence: None)
  Receive Date: 20130708
  Receipt Date: 20131029
  Transmission Date: 20140711
  Serious: Yes (Disabling)
  Sender: FDA-Public Use
  Company Number: AUR-APL-2013-05526

PATIENT
  Sex: Male

DRUGS (8)
  1. RANITIDINE [Concomitant]
  2. TRIMETHOPRIM [Concomitant]
  3. MIRTAZAPINE (MIRTAZAPINE) [Suspect]
     Indication: ANXIETY
  4. MIRTAZAPINE (MIRTAZAPINE) [Suspect]
     Indication: DEPRESSION
  5. MIRTAZAPINE (MIRTAZAPINE) [Suspect]
     Indication: INSOMNIA
  6. BISOPROLOL [Concomitant]
  7. DIAZEPAM (DIAZEPAM) [Concomitant]
  8. LISINOPRIL (LISINOPRIL) [Concomitant]

REACTIONS (4)
  - Musculoskeletal chest pain [None]
  - Back pain [None]
  - Drug effect decreased [None]
  - Middle insomnia [None]
